FAERS Safety Report 9158419 (Version 1)
Quarter: 2013Q1

REPORT INFORMATION
  Report Type: Spontaneous
  Country: US (occurrence: US)
  Receive Date: 20130312
  Receipt Date: 20130312
  Transmission Date: 20140127
  Serious: No
  Sender: FDA-Public Use
  Company Number: US-PFIZER INC-2013078789

PATIENT
  Age: 85 Year
  Sex: Female
  Weight: 58.05 kg

DRUGS (3)
  1. TOVIAZ [Suspect]
     Indication: URINARY INCONTINENCE
     Dosage: 4 MG, 1X/DAY
     Dates: start: 2010
  2. CRESTOR [Concomitant]
     Indication: BLOOD CHOLESTEROL INCREASED
     Dosage: 10 MG, 1X/DAY
     Dates: start: 2011
  3. NIFEDIPINE [Concomitant]
     Indication: HYPERTENSION
     Dosage: 30 MG, 1X/DAY

REACTIONS (1)
  - Drug ineffective [Unknown]
